FAERS Safety Report 5698742-3 (Version None)
Quarter: 2008Q2

REPORT INFORMATION
  Report Type: 
  Country: None (occurrence: None)
  Receive Date: 20080408
  Receipt Date: 20070425
  Transmission Date: 20081010
  Serious: No
  Sender: FDA-Public Use
  Company Number: US-BAYER-US-2007-014914

PATIENT
  Age: 39 Year
  Sex: Female
  Weight: 82 kg

DRUGS (2)
  1. CLIMARA [Suspect]
     Indication: MENOPAUSAL SYMPTOMS PROPHYLAXIS
     Route: 062
     Dates: start: 20070401
  2. SYNTHROID [Concomitant]

REACTIONS (1)
  - APPLICATION SITE PAIN [None]
